FAERS Safety Report 18350674 (Version 1)
Quarter: 2020Q4

REPORT INFORMATION
  Report Type: Report from Study
  Country: US (occurrence: US)
  Receive Date: 20201006
  Receipt Date: 20201006
  Transmission Date: 20210114
  Serious: Yes (Hospitalization, Other)
  Sender: FDA-Public Use
  Company Number: US-JNJFOC-20200947023

PATIENT
  Age: 77 Year
  Sex: Male
  Weight: 107.6 kg

DRUGS (1)
  1. VELETRI [Suspect]
     Active Substance: EPOPROSTENOL
     Indication: PULMONARY ARTERIAL HYPERTENSION
     Route: 042

REACTIONS (3)
  - Pain in jaw [Unknown]
  - Pulmonary arterial hypertension [Unknown]
  - Rectal haemorrhage [Recovered/Resolved]
